FAERS Safety Report 7703821-2 (Version None)
Quarter: 2011Q3

REPORT INFORMATION
  Report Type: 
  Country: None (occurrence: None)
  Receive Date: 20110823
  Receipt Date: 20110816
  Transmission Date: 20111222
  Serious: Yes (Hospitalization, Disabling)
  Sender: FDA-Public Use
  Company Number: AU-ROCHE-790345

PATIENT
  Sex: Male
  Weight: 69 kg

DRUGS (10)
  1. PREDNISOLONE [Suspect]
     Dosage: 5 TO 10 MG DAILY
     Route: 048
     Dates: start: 20090514
  2. METHOTREXATE [Concomitant]
     Route: 048
     Dates: start: 20090514
  3. PERENTEROL [Concomitant]
     Indication: HYPERTENSION
     Route: 048
  4. METFORMIN HCL [Concomitant]
     Route: 048
  5. ACTEMRA [Suspect]
     Indication: RHEUMATOID ARTHRITIS
     Route: 042
     Dates: start: 20100908
  6. METHOTREXATE [Concomitant]
     Route: 048
  7. CORTICOSTEROIDS [Concomitant]
     Route: 048
  8. PREDNISOLONE [Suspect]
     Route: 048
     Dates: start: 20081127
  9. METFORMIN HCL [Concomitant]
     Dosage: FREQUENCY: BD
     Route: 048
  10. DIAMICRON [Concomitant]
     Route: 048

REACTIONS (2)
  - TRANSIENT ISCHAEMIC ATTACK [None]
  - CEREBROVASCULAR ACCIDENT [None]
